FAERS Safety Report 10041517 (Version 1)
Quarter: 2014Q1

REPORT INFORMATION
  Report Type: Spontaneous
  Country: AU (occurrence: None)
  Receive Date: 20140325
  Receipt Date: 20140325
  Transmission Date: 20141002
  Serious: Yes (Death, Hospitalization)
  Sender: FDA-Public Use
  Company Number: 2014000048

PATIENT
  Age: 63 Year
  Sex: Male
  Weight: 57 kg

DRUGS (3)
  1. ACEON (PERINDOPRIL ERBUMINE) TABLET, 4MG [Suspect]
     Indication: HYPERTENSION
     Route: 048
     Dates: start: 20030416, end: 200305
  2. NATRILIX (INDAPAMIDE HEMIHYDRATE) [Suspect]
     Indication: ESSENTIAL HYPERTENSION
     Route: 048
     Dates: start: 20030509, end: 200305
  3. FELODUR ER (FELODIPINE) [Concomitant]

REACTIONS (6)
  - Grand mal convulsion [None]
  - Hypokalaemia [None]
  - Hyponatraemia [None]
  - Drug interaction [None]
  - Cardiac arrest [None]
  - Confusional state [None]
